FAERS Safety Report 16454387 (Version 1)
Quarter: 2019Q2

REPORT INFORMATION
  Report Type: Spontaneous
  Country: US (occurrence: US)
  Receive Date: 20190619
  Receipt Date: 20190619
  Transmission Date: 20190711
  Serious: Yes (Hospitalization)
  Sender: FDA-Public Use
  Company Number: US-PFIZER INC-2019263950

PATIENT
  Age: 27 Year
  Sex: Male
  Weight: 61.22 kg

DRUGS (2)
  1. XANAX [Suspect]
     Active Substance: ALPRAZOLAM
     Dosage: UNK
  2. REMODULIN [Concomitant]
     Active Substance: TREPROSTINIL
     Dosage: 2.5MG/ML, 2 NG/KG/MIN - SUBCUTANEOUS
     Route: 058
     Dates: start: 20190517

REACTIONS (2)
  - Dyspnoea [Unknown]
  - Overdose [Unknown]
